FAERS Safety Report 4313960-4 (Version None)
Quarter: 2004Q1

REPORT INFORMATION
  Report Type: 
  Country: None (occurrence: None)
  Receive Date: 20040305
  Receipt Date: 20040225
  Transmission Date: 20041129
  Serious: Yes (Hospitalization)
  Sender: FDA-Public Use
  Company Number: 2004013205

PATIENT
  Sex: Male

DRUGS (3)
  1. VIRACEPT [Suspect]
     Indication: HIV INFECTION
  2. ZIDOVUDINE W/LAMIVUDINE (ZIDOVUDINE, LAMIVUDINE) [Concomitant]
  3. ENSURE PLUS (VITAMIN NOS, MINERALS NOS, ELECTROLYTES NOS, CARBOHYDRATE [Concomitant]

REACTIONS (3)
  - CHEST DISCOMFORT [None]
  - DIARRHOEA [None]
  - NAUSEA [None]
